FAERS Safety Report 15545612 (Version 13)
Quarter: 2019Q2

REPORT INFORMATION
  Report Type: Spontaneous
  Country: CA (occurrence: CA)
  Receive Date: 20181024
  Receipt Date: 20190523
  Transmission Date: 20190711
  Serious: Yes (Other)
  Sender: FDA-Public Use
  Company Number: CA-CELLTRION INC.-2018CA018370

PATIENT

DRUGS (10)
  1. INFLECTRA [Suspect]
     Active Substance: INFLIXIMAB-DYYB
     Indication: PSORIATIC ARTHROPATHY
     Dosage: 500 MG EVERY 6 WEEKS
     Route: 042
     Dates: start: 20180313
  2. INFLECTRA [Suspect]
     Active Substance: INFLIXIMAB-DYYB
     Dosage: 500 MG EVERY 6 WEEKS
     Route: 042
     Dates: start: 20180424, end: 20180424
  3. INFLECTRA [Suspect]
     Active Substance: INFLIXIMAB-DYYB
     Dosage: 500 MG EVERY 6 WEEKS
     Route: 042
     Dates: start: 20180712, end: 20180712
  4. INFLECTRA [Suspect]
     Active Substance: INFLIXIMAB-DYYB
     Dosage: 500 MG EVERY 6 WEEKS
     Route: 042
     Dates: start: 20180607, end: 20180607
  5. METHOTREXATE. [Concomitant]
     Active Substance: METHOTREXATE
     Indication: IMMUNOSUPPRESSION
     Dosage: UNK
  6. INFLECTRA [Suspect]
     Active Substance: INFLIXIMAB-DYYB
     Dosage: 500 MG EVERY 6 WEEKS
     Route: 042
     Dates: start: 20181105, end: 20181105
  7. INFLECTRA [Suspect]
     Active Substance: INFLIXIMAB-DYYB
     Dosage: 500 MG EVERY 6 WEEKS
     Route: 042
     Dates: start: 20181219, end: 20181219
  8. INFLECTRA [Suspect]
     Active Substance: INFLIXIMAB-DYYB
     Dosage: 500 MG EVERY 6 WEEKS
     Route: 042
     Dates: start: 20180828, end: 20180828
  9. INFLECTRA [Suspect]
     Active Substance: INFLIXIMAB-DYYB
     Dosage: 500 MG EVERY 6 WEEKS
     Route: 042
     Dates: start: 20190201, end: 20190201
  10. METHOTREXATE. [Concomitant]
     Active Substance: METHOTREXATE
     Indication: IMMUNOSUPPRESSANT DRUG THERAPY
     Dosage: UNK

REACTIONS (31)
  - Abdominal pain [Unknown]
  - Hypopnoea [Unknown]
  - Gastric ulcer [Unknown]
  - Blood pressure fluctuation [Unknown]
  - Pneumonia [Recovering/Resolving]
  - Cough [Not Recovered/Not Resolved]
  - Bronchitis [Recovering/Resolving]
  - Secretion discharge [Not Recovered/Not Resolved]
  - Hypoaesthesia [Unknown]
  - Feeling hot [Unknown]
  - Migraine [Unknown]
  - Localised infection [Unknown]
  - Pain in extremity [Not Recovered/Not Resolved]
  - Headache [Recovered/Resolved]
  - C-reactive protein increased [Unknown]
  - Erythema [Not Recovered/Not Resolved]
  - Decreased appetite [Unknown]
  - Productive cough [Recovering/Resolving]
  - Product use issue [Unknown]
  - Fatigue [Unknown]
  - Drug specific antibody present [Unknown]
  - Fatigue [Unknown]
  - Dizziness [Recovered/Resolved]
  - Vomiting [Unknown]
  - Off label use [Unknown]
  - Pyrexia [Recovered/Resolved]
  - Dysphonia [Unknown]
  - Wheezing [Unknown]
  - Inflammation [Not Recovered/Not Resolved]
  - Product use issue [Unknown]
  - Nausea [Unknown]

NARRATIVE: CASE EVENT DATE: 20180829
